FAERS Safety Report 11862062 (Version 1)
Quarter: 2015Q4

REPORT INFORMATION
  Report Type: Spontaneous
  Country: US (occurrence: US)
  Receive Date: 20151222
  Receipt Date: 20151222
  Transmission Date: 20160305
  Serious: No
  Sender: FDA-Public Use
  Company Number: US-TAKEDA-2015TUS018275

PATIENT
  Age: 45 Year
  Sex: Male
  Weight: 87.98 kg

DRUGS (3)
  1. ULORIC [Suspect]
     Active Substance: FEBUXOSTAT
     Indication: GOUT
     Dosage: 40 MG, QD
     Route: 048
     Dates: start: 201506, end: 2015
  2. ULORIC [Suspect]
     Active Substance: FEBUXOSTAT
     Dosage: 40 MG, BID
     Route: 048
     Dates: start: 2015, end: 2015
  3. ULORIC [Suspect]
     Active Substance: FEBUXOSTAT
     Dosage: 80 MG, QD
     Route: 048
     Dates: start: 2015

REACTIONS (2)
  - Intentional product use issue [Recovered/Resolved]
  - Gout [Recovering/Resolving]

NARRATIVE: CASE EVENT DATE: 201511
